FAERS Safety Report 4776860-1 (Version None)
Quarter: 2005Q3

REPORT INFORMATION
  Report Type: 
  Country: None (occurrence: None)
  Receive Date: 20050914
  Receipt Date: 20040910
  Transmission Date: 20060218
  Serious: Yes (Hospitalization)
  Sender: FDA-Public Use
  Company Number: 163-20785-04090210

PATIENT
  Age: 57 Year
  Sex: Female
  Weight: 83.2 kg

DRUGS (4)
  1. THALOMID [Suspect]
     Indication: NON-SMALL CELL LUNG CANCER
     Dosage: STARTING AT 200MG ON DAY 1 W. WEEKLY TITRATION OF 100MG UP TO 1000MG, QD, ORAL
     Route: 048
     Dates: start: 20040603, end: 20040903
  2. CARBOPLATIN [Suspect]
     Indication: NON-SMALL CELL LUNG CANCER
     Dosage: SEE IMAGE
     Route: 042
     Dates: start: 20040603, end: 20040810
  3. PACLITAXEL [Suspect]
     Indication: NON-SMALL CELL LUNG CANCER
     Dosage: SEE IMAGE
     Route: 042
     Dates: start: 20040603, end: 20040810
  4. RADIATION THERAPY [Suspect]
     Indication: NON-SMALL CELL LUNG CANCER
     Dosage: 60 GY AT 2.0 GY PER FRACTION OVER 6 WEEKS, BEGINNING BETWEEN DAYS 43-50

REACTIONS (4)
  - DEHYDRATION [None]
  - DYSPHAGIA [None]
  - NAUSEA [None]
  - NON-CARDIAC CHEST PAIN [None]
